FAERS Safety Report 16289590 (Version 1)
Quarter: 2019Q2

REPORT INFORMATION
  Report Type: Spontaneous
  Country: US (occurrence: US)
  Receive Date: 20190508
  Receipt Date: 20190508
  Transmission Date: 20190711
  Serious: Yes (Other)
  Sender: FDA-Public Use
  Company Number: None

PATIENT
  Age: 52 Year
  Sex: Female
  Weight: 69.75 kg

DRUGS (19)
  1. CITALOPRAM [Concomitant]
     Active Substance: CITALOPRAM HYDROBROMIDE
  2. LATUDA GENERIC CAN^T FIND BOTTLE [Suspect]
     Active Substance: LURASIDONE HYDROCHLORIDE
     Indication: DEPRESSION
     Dosage: ?          QUANTITY:1 TABLET(S);?
     Route: 048
     Dates: start: 20190508, end: 20190508
  3. LEVOTHYROXINE. [Concomitant]
     Active Substance: LEVOTHYROXINE
  4. ACYCLOVIR. [Concomitant]
     Active Substance: ACYCLOVIR
  5. MELATONIN [Concomitant]
     Active Substance: MELATONIN
  6. PREDNISOLONE AC [Concomitant]
     Active Substance: PREDNISOLONE ACETATE
  7. ISOSORBIDE MONONITRATE. [Concomitant]
     Active Substance: ISOSORBIDE MONONITRATE
  8. POTASSIUM [Concomitant]
     Active Substance: POTASSIUM
  9. RANEXA [Concomitant]
     Active Substance: RANOLAZINE
  10. LEMON BALM [Concomitant]
  11. PROAIR HFA [Concomitant]
     Active Substance: ALBUTEROL SULFATE
  12. METFORMIN [Concomitant]
     Active Substance: METFORMIN HYDROCHLORIDE
  13. LATUDA GENERIC CAN^T FIND BOTTLE [Suspect]
     Active Substance: LURASIDONE HYDROCHLORIDE
     Indication: SLEEP DISORDER
     Dosage: ?          QUANTITY:1 TABLET(S);?
     Route: 048
     Dates: start: 20190508, end: 20190508
  14. GABAPENTIN. [Concomitant]
     Active Substance: GABAPENTIN
  15. PRAZOSIN. [Concomitant]
     Active Substance: PRAZOSIN
  16. GLIPIZIDE. [Concomitant]
     Active Substance: GLIPIZIDE
  17. MIRTAZEPINE [Concomitant]
     Active Substance: MIRTAZAPINE
  18. METOPROLOL. [Concomitant]
     Active Substance: METOPROLOL
  19. MAGNESIUM [Concomitant]
     Active Substance: MAGNESIUM

REACTIONS (3)
  - Diarrhoea [None]
  - Dizziness [None]
  - Polyuria [None]

NARRATIVE: CASE EVENT DATE: 20190508
